FAERS Safety Report 9245131 (Version 1)
Quarter: 2013Q1

REPORT INFORMATION
  Report Type: Spontaneous
  Country: US (occurrence: None)
  Receive Date: 20121130
  Receipt Date: 20121130
  Transmission Date: 20140127
  Serious: Yes (Other)
  Sender: FDA-Public Use
  Company Number: PHEH2012US003079

PATIENT
  Age: 75 Year
  Sex: Female

DRUGS (9)
  1. TEKTURNA (ALISKIREN) [Suspect]
     Indication: BLOOD PRESSURE
  2. LEVOXYL (LEVOTHYROXINE SODIUM) [Concomitant]
  3. ROPINIROLE (ROPINIROLE) [Concomitant]
  4. LISINOPRIL (LISINOPRIL) [Concomitant]
  5. METOPROLOL (METOPROLOL) [Concomitant]
  6. FENTANYL (FENTANYL) [Concomitant]
  7. VICODIN (HYDROCODONE BITARTRATE, PARACETAMOL0 [Concomitant]
  8. CLONDAZEPAM (CLONAZEPAM) [Concomitant]
  9. CARISOPRODOL (CARISOPRODOL) [Concomitant]

REACTIONS (1)
  - Blood pressure increased [None]
